FAERS Safety Report 4541305-3 (Version None)
Quarter: 2004Q4

REPORT INFORMATION
  Report Type: 
  Country: None (occurrence: None)
  Receive Date: 20041228
  Receipt Date: 20041222
  Transmission Date: 20050328
  Serious: Yes (Disabling)
  Sender: FDA-Public Use
  Company Number: US-JNJFOC-20041205784

PATIENT
  Age: 42 Year
  Sex: Female

DRUGS (1)
  1. MOTRIN [Suspect]
     Indication: ARTHRITIS
     Dosage: 1600 MG QD
     Dates: start: 19820101, end: 19840101

REACTIONS (3)
  - IRIS DISORDER [None]
  - RETINITIS [None]
  - VITREOUS FLOATERS [None]
